FAERS Safety Report 26212190 (Version 1)
Quarter: 2025Q4

REPORT INFORMATION
  Report Type: Spontaneous
  Country: US (occurrence: US)
  Receive Date: 20251230
  Receipt Date: 20251230
  Transmission Date: 20260117
  Serious: Yes (Hospitalization)
  Sender: BAXTER
  Company Number: US-BAXTER-2025BAX026530

PATIENT
  Age: 90 Year
  Sex: Male

DRUGS (2)
  1. DOPAMINE [Suspect]
     Active Substance: DOPAMINE HYDROCHLORIDE
     Indication: Bradycardia
     Dosage: UNK
     Route: 065
  2. EPINEPHRINE [Suspect]
     Active Substance: EPINEPHRINE
     Indication: Bradycardia
     Dosage: UNK
     Route: 065

REACTIONS (3)
  - Hyperlactacidaemia [Recovered/Resolved]
  - Blood lactic acid increased [Recovered/Resolved]
  - Hypertension [Recovered/Resolved]
